FAERS Safety Report 4741683-6 (Version None)
Quarter: 2005Q3

REPORT INFORMATION
  Report Type: 
  Country: None (occurrence: None)
  Receive Date: 20050804
  Receipt Date: 20050301
  Transmission Date: 20060218
  Serious: Yes (Hospitalization, Disabling)
  Sender: FDA-Public Use
  Company Number: US-JNJFOC-20040705075

PATIENT
  Age: 6 Year
  Sex: Male

DRUGS (2)
  1. CHILDREN'S MOTRIN [Suspect]
     Indication: PYREXIA
     Dates: start: 20030227
  2. ZITHROMAX [Concomitant]

REACTIONS (1)
  - STEVENS-JOHNSON SYNDROME [None]
